FAERS Safety Report 15962670 (Version 1)
Quarter: 2019Q1

REPORT INFORMATION
  Report Type: Spontaneous
  Country: US (occurrence: US)
  Receive Date: 20190214
  Receipt Date: 20190214
  Transmission Date: 20190417
  Serious: Yes (Hospitalization)
  Sender: FDA-Public Use
  Company Number: PHEH2019US006384

PATIENT
  Age: 71 Year
  Sex: Male

DRUGS (1)
  1. TRILEPTAL [Suspect]
     Active Substance: OXCARBAZEPINE
     Indication: PRODUCT USED FOR UNKNOWN INDICATION
     Route: 065

REACTIONS (4)
  - Fracture [Unknown]
  - Blood sodium decreased [Recovered/Resolved]
  - Fall [Unknown]
  - Renal failure [Unknown]

NARRATIVE: CASE EVENT DATE: 20190104
